FAERS Safety Report 9840094 (Version 1)
Quarter: 2013Q4

REPORT INFORMATION
  Report Type: Spontaneous
  Country: US (occurrence: None)
  Receive Date: 20131211
  Receipt Date: 20131211
  Transmission Date: 20140711
  Serious: Yes (Other)
  Sender: FDA-Public Use
  Company Number: ALL1-2012-01074

PATIENT
  Age: 57 Year
  Sex: Male

DRUGS (2)
  1. FIRAZYR [Suspect]
     Dosage: (SINGLE 3ML SYRINGE) SUBCUTANEOUS
     Route: 058
     Dates: start: 20120106
  2. STANOZOLOL (STANOZOLOL) [Concomitant]

REACTIONS (1)
  - Angioedema [None]
